FAERS Safety Report 9609630 (Version 1)
Quarter: 2013Q4

REPORT INFORMATION
  Report Type: Report from Study
  Country: TW (occurrence: TW)
  Receive Date: 20131009
  Receipt Date: 20131009
  Transmission Date: 20140711
  Serious: No
  Sender: FDA-Public Use
  Company Number: PHHY2012TW120499

PATIENT
  Age: 56 Year
  Sex: Male

DRUGS (14)
  1. AMN107 [Suspect]
  2. IBUPROFEN [Concomitant]
     Indication: PAIN
     Dosage: UNK
     Dates: end: 20111202
  3. IBUPROFEN [Concomitant]
     Dosage: UNK
  4. NEO-CORTISONE [Concomitant]
     Indication: RASH PRURITIC
     Dosage: UNK
     Dates: start: 20101007
  5. METHOCARBAMOL [Concomitant]
     Indication: MUSCLE SPASMS
     Dosage: UNK
     Dates: end: 20101216
  6. METHOCARBAMOL [Concomitant]
     Dosage: UNK
     Dates: start: 20110217, end: 20120705
  7. LEVOCETIRIZINE [Concomitant]
     Indication: RASH PRURITIC
     Dosage: UNK
     Dates: start: 20101216, end: 20110414
  8. BACITRACIN [Concomitant]
     Indication: RASH PRURITIC
     Dosage: UNK
     Dates: start: 20111229
  9. CALAMINE LOTION [Concomitant]
     Indication: RASH PRURITIC
     Dosage: UNK
     Dates: start: 20110317, end: 20110414
  10. CEFADROXIL MONOHYDRATE [Concomitant]
     Indication: ECZEMA
     Dosage: UNK
     Dates: start: 20110414, end: 20110512
  11. RINDERON A [Concomitant]
     Indication: EYE DISCHARGE
     Dosage: UNK
     Dates: start: 20121025
  12. SILYMARIN [Concomitant]
     Indication: LIVER FUNCTION TEST ABNORMAL
     Dosage: UNK
     Dates: start: 20120216, end: 20120315
  13. SILYMARIN [Concomitant]
     Indication: PROPHYLAXIS
     Dosage: UNK
     Dates: start: 20120802, end: 20120830
  14. ULTRACET [Concomitant]
     Indication: BACK PAIN
     Dosage: UNK
     Dates: start: 20120830, end: 20121025

REACTIONS (1)
  - Aspartate aminotransferase increased [Unknown]
